FAERS Safety Report 21038821 (Version 2)
Quarter: 2022Q3

REPORT INFORMATION
  Report Type: Spontaneous
  Country: US (occurrence: US)
  Receive Date: 20220704
  Receipt Date: 20220714
  Transmission Date: 20221027
  Serious: No
  Sender: FDA-Public Use
  Company Number: US-JNJFOC-20220640885

PATIENT
  Age: 27 Year
  Sex: Male
  Weight: 72.640 kg

DRUGS (4)
  1. TREMFYA [Suspect]
     Active Substance: GUSELKUMAB
     Indication: Colitis ulcerative
     Route: 065
     Dates: start: 20220522
  2. SULFASALAZINE [Concomitant]
     Active Substance: SULFASALAZINE
     Route: 065
  3. RELAFEN [Concomitant]
     Active Substance: NABUMETONE
     Route: 065
  4. ERGOCALCIFEROL [Concomitant]
     Active Substance: ERGOCALCIFEROL

REACTIONS (6)
  - Arthralgia [Unknown]
  - Mobility decreased [Unknown]
  - Feeling cold [Unknown]
  - Chest pain [Unknown]
  - Off label use [Unknown]
  - Bone pain [Unknown]
